FAERS Safety Report 14431844 (Version 1)
Quarter: 2018Q1

REPORT INFORMATION
  Report Type: Spontaneous
  Country: CN (occurrence: CN)
  Receive Date: 20180124
  Receipt Date: 20180124
  Transmission Date: 20180509
  Serious: Yes (Other)
  Sender: FDA-Public Use
  Company Number: CN-MERCK KGAA-2040705

PATIENT
  Sex: Female

DRUGS (1)
  1. NOVOTHYROX [Suspect]
     Active Substance: LEVOTHYROXINE SODIUM
     Indication: HYPOTHYROIDISM
     Route: 048

REACTIONS (12)
  - Extrasystoles [None]
  - Dizziness [None]
  - Heart rate increased [None]
  - Influenza [Recovering/Resolving]
  - Inflammation [None]
  - Hypertension [None]
  - Post procedural complication [None]
  - Hypoaesthesia [None]
  - Angina pectoris [None]
  - Autoimmune thyroiditis [None]
  - Anti-thyroid antibody positive [None]
  - Oedema [None]
